FAERS Safety Report 10181697 (Version 2)
Quarter: 2014Q2

REPORT INFORMATION
  Report Type: Spontaneous
  Country: US (occurrence: US)
  Receive Date: 20140519
  Receipt Date: 20140606
  Transmission Date: 20141212
  Serious: No
  Sender: FDA-Public Use
  Company Number: US-PFIZER INC-2014136396

PATIENT
  Age: 71 Year
  Sex: Male
  Weight: 83.45 kg

DRUGS (4)
  1. VIAGRA [Suspect]
     Indication: ERECTILE DYSFUNCTION
     Dosage: 100 MG, AS NEEDED
  2. LIPITOR [Concomitant]
     Indication: BLOOD CHOLESTEROL INCREASED
     Dosage: 10 MG, DAILY
  3. ASPIRIN [Concomitant]
     Dosage: 81 MG, DAILY
  4. METOPROLOL [Concomitant]
     Dosage: 50 MG, DAILY

REACTIONS (7)
  - Body temperature decreased [Recovered/Resolved]
  - Feeling cold [Recovered/Resolved]
  - Chills [Recovered/Resolved]
  - Eye pain [Unknown]
  - Nasal congestion [Unknown]
  - Abdominal discomfort [Unknown]
  - Headache [Unknown]
